FAERS Safety Report 24581915 (Version 4)
Quarter: 2025Q1

REPORT INFORMATION
  Report Type: Spontaneous
  Country: US (occurrence: US)
  Receive Date: 20241105
  Receipt Date: 20250206
  Transmission Date: 20250409
  Serious: Yes (Other)
  Sender: SANOFI AVENTIS
  Company Number: US-SA-2024SA313579

PATIENT
  Age: 56 Year
  Sex: Female

DRUGS (2)
  1. DUPIXENT [Suspect]
     Active Substance: DUPILUMAB
     Indication: Asthma
     Route: 058
     Dates: start: 202408, end: 202408
  2. DUPIXENT [Suspect]
     Active Substance: DUPILUMAB
     Indication: Chronic obstructive pulmonary disease
     Dosage: 300 MG, QOW
     Route: 058
     Dates: start: 202409

REACTIONS (15)
  - Suicidal ideation [Recovered/Resolved]
  - Chest injury [Unknown]
  - Dementia [Unknown]
  - Dyspnoea [Not Recovered/Not Resolved]
  - Sputum discoloured [Unknown]
  - Fall [Unknown]
  - Panic attack [Unknown]
  - Arthropathy [Unknown]
  - Thyroid disorder [Unknown]
  - Rotator cuff syndrome [Unknown]
  - Emotional distress [Unknown]
  - COVID-19 [Unknown]
  - Productive cough [Not Recovered/Not Resolved]
  - Dizziness [Unknown]
  - Product dose omission in error [Unknown]

NARRATIVE: CASE EVENT DATE: 20240101
